FAERS Safety Report 15687384 (Version 4)
Quarter: 2019Q1

REPORT INFORMATION
  Report Type: Report from Study
  Country: IL (occurrence: IL)
  Receive Date: 20181205
  Receipt Date: 20190329
  Transmission Date: 20190417
  Serious: Yes (Hospitalization)
  Sender: FDA-Public Use
  Company Number: IL-ROCHE-2221789

PATIENT
  Age: 41 Year
  Sex: Female
  Weight: 68 kg

DRUGS (16)
  1. CIPRALEX [Concomitant]
     Active Substance: ESCITALOPRAM OXALATE
     Indication: ANXIETY
     Route: 065
     Dates: start: 20181018
  2. FERRIC PYROPHOSPHATE [Concomitant]
     Active Substance: FERRIC PYROPHOSPHATE
     Indication: NUTRITIONAL SUPPLEMENTATION
     Route: 065
     Dates: start: 20181127
  3. PACLITAXEL. [Suspect]
     Active Substance: PACLITAXEL
     Indication: OVARIAN CANCER
     Dosage: DOSE OF LAST DOSE (300 MG) PACLITAXEL ADMINISTERED PRIOR TO SAE ONSET: 13/NOV/2018
     Route: 042
     Dates: start: 20181113
  4. CLEXANE [Concomitant]
     Active Substance: ENOXAPARIN SODIUM
     Route: 065
     Dates: start: 20181109
  5. TARGIN [Concomitant]
     Active Substance: NALOXONE HYDROCHLORIDE\OXYCODONE HYDROCHLORIDE
     Route: 065
     Dates: start: 20181018
  6. ORACORT E [Concomitant]
     Indication: STOMATITIS
     Route: 065
     Dates: start: 20181125
  7. CLEXANE [Concomitant]
     Active Substance: ENOXAPARIN SODIUM
     Indication: PROPHYLAXIS
     Route: 065
     Dates: start: 20181023, end: 20181108
  8. BONDORMIN [Concomitant]
     Active Substance: BROTIZOLAM
     Indication: SLEEP DISORDER
     Route: 065
     Dates: start: 20181018
  9. NYSTATIN. [Concomitant]
     Active Substance: NYSTATIN
     Indication: STOMATITIS
     Route: 065
     Dates: start: 20181128, end: 20181128
  10. LORATADINE. [Concomitant]
     Active Substance: LORATADINE
     Indication: RASH
     Route: 065
     Dates: start: 20181128, end: 20181129
  11. CARBOPLATIN. [Suspect]
     Active Substance: CARBOPLATIN
     Indication: OVARIAN CANCER
     Dosage: DATE OF MOST RECENT DOSE (840 MG) OF CARBOPLATIN PRIOR TO SAE ONSET: 13/NOV/2018
     Route: 042
     Dates: start: 20181113
  12. AUGMENTIN [Concomitant]
     Active Substance: AMOXICILLIN\CLAVULANATE POTASSIUM
     Indication: LEUKOCYTOSIS
     Route: 065
     Dates: start: 20181023, end: 20181029
  13. AVILAC [Concomitant]
     Route: 065
     Dates: start: 20181018
  14. ATEZOLIZUMAB. [Suspect]
     Active Substance: ATEZOLIZUMAB
     Indication: OVARIAN CANCER
     Dosage: DATE OF MOST RECENT DOSE OF ATEZOLIZUMAB/PLACEBO PRIOR TO AE ONSET: 13/NOV/2018
     Route: 042
     Dates: start: 20181113
  15. RECTOZORIN OINTMENT [Concomitant]
     Indication: HAEMORRHOIDS
     Route: 065
     Dates: start: 2000
  16. ARNICA [Concomitant]
     Active Substance: ARNICA MONTANA FLOWER
     Route: 065
     Dates: start: 20181101

REACTIONS (1)
  - Febrile neutropenia [Recovered/Resolved]

NARRATIVE: CASE EVENT DATE: 20181124
